FAERS Safety Report 4359373-0 (Version None)
Quarter: 2004Q2

REPORT INFORMATION
  Report Type: 
  Country: None (occurrence: None)
  Receive Date: 20040518
  Receipt Date: 20040506
  Transmission Date: 20050107
  Serious: Yes (Other)
  Sender: FDA-Public Use
  Company Number: PHBS2004CA06077

PATIENT
  Sex: Male

DRUGS (1)
  1. ELIDEL [Suspect]

REACTIONS (1)
  - BASAL CELL CARCINOMA [None]
